FAERS Safety Report 9125226 (Version 1)
Quarter: 2013Q1

REPORT INFORMATION
  Report Type: Spontaneous
  Country: US (occurrence: US)
  Receive Date: 20130227
  Receipt Date: 20130227
  Transmission Date: 20140127
  Serious: Yes (Disabling)
  Sender: FDA-Public Use
  Company Number: US-ASTRAZENECA-2013SE11201

PATIENT
  Sex: Female

DRUGS (4)
  1. CRESTOR [Suspect]
     Route: 048
  2. CELEBREX [Suspect]
     Indication: ARTHRALGIA
     Route: 065
  3. STEROID [Suspect]
     Indication: FIBROMYALGIA
     Route: 065
  4. STEROID [Suspect]
     Indication: ARTHRALGIA
     Route: 065

REACTIONS (12)
  - Intervertebral disc disorder [Unknown]
  - Nerve compression [Unknown]
  - Osteoarthritis [Unknown]
  - Osteoarthritis [Unknown]
  - Arthralgia [Unknown]
  - Fibromyalgia [Unknown]
  - Diabetes mellitus [Unknown]
  - Weight increased [Unknown]
  - Adverse drug reaction [Unknown]
  - Drug hypersensitivity [Unknown]
  - Cushing^s syndrome [Unknown]
  - Drug ineffective [Unknown]
